FAERS Safety Report 7243748-6 (Version None)
Quarter: 2011Q1

REPORT INFORMATION
  Report Type: 
  Country: None (occurrence: None)
  Receive Date: 20110125
  Receipt Date: 20110119
  Transmission Date: 20110831
  Serious: Yes (Other)
  Sender: FDA-Public Use
  Company Number: US-PFIZER INC-2011013116

PATIENT
  Sex: Male

DRUGS (3)
  1. CELEBREX [Suspect]
     Indication: TENDON DISORDER
     Dosage: 200 MG DAILY
  2. NAPROXEN SODIUM [Suspect]
     Indication: TENDON DISORDER
     Dosage: UNK
  3. ACETYLSALICYLIC ACID [Concomitant]
     Indication: ATRIAL FIBRILLATION
     Dosage: UNK

REACTIONS (2)
  - TINNITUS [None]
  - CEREBROVASCULAR ACCIDENT [None]
